FAERS Safety Report 23071510 (Version 1)
Quarter: 2023Q4

REPORT INFORMATION
  Report Type: Spontaneous
  Country: FR (occurrence: FR)
  Receive Date: 20231017
  Receipt Date: 20231017
  Transmission Date: 20240110
  Serious: Yes (Other)
  Sender: FDA-Public Use
  Company Number: FR-TEVA-2023-FR-2931753

PATIENT
  Age: 65 Year
  Sex: Male

DRUGS (1)
  1. AMIODARONE [Suspect]
     Active Substance: AMIODARONE
     Indication: Product used for unknown indication
     Dosage: 100-200 MG DAILY STARTED FIFTEEN MONTHS AGO
     Route: 065

REACTIONS (4)
  - Hypoxia [Recovered/Resolved]
  - Organising pneumonia [Recovered/Resolved]
  - Cough [Recovered/Resolved]
  - Dyspnoea exertional [Recovered/Resolved]
